FAERS Safety Report 16997229 (Version 1)
Quarter: 2019Q4

REPORT INFORMATION
  Report Type: Spontaneous
  Country: JP (occurrence: JP)
  Receive Date: 20191106
  Receipt Date: 20191106
  Transmission Date: 20200122
  Serious: Yes (Hospitalization)
  Sender: FDA-Public Use
  Company Number: JP-TEVA-2019-JP-1132193

PATIENT
  Age: 75 Year
  Sex: Male

DRUGS (3)
  1. DURVALUMAB. [Suspect]
     Active Substance: DURVALUMAB
     Indication: NON-SMALL CELL LUNG CANCER
     Dosage: MAINTENANCE CHEMOTHERAPY; ADMINISTERED EVERY TWO WEEKS
     Route: 065
  2. PACLITAXEL. [Suspect]
     Active Substance: PACLITAXEL
     Indication: NON-SMALL CELL LUNG CANCER
     Dosage: INDUCTION CHEMOTHERAPY; ADMINISTERED ON DAYS 1, 8, AND 15 EVERY 3 WEEKS FOR TWO CYCLES
     Route: 065
  3. CARBOPLATIN. [Suspect]
     Active Substance: CARBOPLATIN
     Indication: NON-SMALL CELL LUNG CANCER
     Dosage: INDUCTION CHEMOTHERAPY
     Route: 065

REACTIONS (3)
  - Pneumonitis [Unknown]
  - Haemoptysis [Unknown]
  - Bronchial fistula [Unknown]
